FAERS Safety Report 6249961-9 (Version None)
Quarter: 2009Q2

REPORT INFORMATION
  Report Type: 
  Country: None (occurrence: None)
  Receive Date: 20090629
  Receipt Date: 20090622
  Transmission Date: 20091009
  Serious: Yes (Other)
  Sender: FDA-Public Use
  Company Number: DE-B.I. PHARMACEUTICALS,INC./RIDGEFIELD-2009-DE-03538DE

PATIENT
  Sex: Male
  Weight: 70 kg

DRUGS (11)
  1. SIFROL [Suspect]
     Dosage: 7.5 TABLETS
     Route: 048
  2. CITALOPRAM HYDROBROMIDE [Suspect]
     Dosage: 5 X 20 MG TABLETS
     Route: 048
  3. LEVOCOMP [Suspect]
     Dosage: 5 TABLETS 100 MG LEVODOPA / 25 MG CARBIDOPA
     Route: 048
  4. LOCOL [Suspect]
     Dosage: 5 TABLETS
     Route: 048
  5. MARCUMAR [Suspect]
     Dosage: 2.5 TABLETS
  6. METOPROLOL SUCCINATE [Suspect]
     Dosage: 5 TABLETS
     Route: 048
  7. MONOBETA [Suspect]
     Dosage: 5 TABLETS
     Route: 048
  8. OMEPRAZOL [Suspect]
     Dosage: 5 TABLETS
     Route: 048
  9. CLONAZEPAM [Suspect]
     Dosage: 5 TABLETS
     Route: 048
  10. STALEVO 100 [Suspect]
     Dosage: 15 TABLETS (50 MG LEVODOPA / 12,5 MG CABIDOPA / 200 MG ENTACAPON)
     Route: 048
  11. VESDIL [Suspect]
     Dosage: 5 TABLETS
     Route: 048

REACTIONS (5)
  - BRADYCARDIA [None]
  - DRUG ABUSE [None]
  - HYPOTENSION [None]
  - OVERDOSE [None]
  - SUICIDE ATTEMPT [None]
